FAERS Safety Report 15512249 (Version 1)
Quarter: 2018Q4

REPORT INFORMATION
  Report Type: Spontaneous
  Country: US (occurrence: US)
  Receive Date: 20181016
  Receipt Date: 20181016
  Transmission Date: 20190205
  Serious: No
  Sender: FDA-Public Use
  Company Number: US-AMGEN-USASP2018085560

PATIENT
  Sex: Male

DRUGS (4)
  1. ALIMTA [Concomitant]
     Active Substance: PEMETREXED DISODIUM
     Dosage: UNK
  2. KEYTRUDA [Concomitant]
     Active Substance: PEMBROLIZUMAB
     Dosage: UNK
  3. CARBOPLATIN. [Concomitant]
     Active Substance: CARBOPLATIN
     Dosage: UNK
  4. NEULASTA [Suspect]
     Active Substance: PEGFILGRASTIM
     Indication: PRODUCT USED FOR UNKNOWN INDICATION
     Dosage: UNK UNK, Q3WK
     Route: 065

REACTIONS (6)
  - Wrong technique in product usage process [Unknown]
  - Injury associated with device [Unknown]
  - Contusion [Unknown]
  - Injection site discomfort [Recovering/Resolving]
  - Skin irritation [Unknown]
  - Feeling hot [Unknown]

NARRATIVE: CASE EVENT DATE: 20180621
